FAERS Safety Report 4767559-6 (Version None)
Quarter: 2005Q3

REPORT INFORMATION
  Report Type: 
  Country: None (occurrence: None)
  Receive Date: 20050913
  Receipt Date: 20050907
  Transmission Date: 20060218
  Serious: Yes (Death, Hospitalization)
  Sender: FDA-Public Use
  Company Number: US-JNJFOC-20050901664

PATIENT
  Age: 36 Year
  Sex: Male

DRUGS (8)
  1. ACETAMINOPHEN [Suspect]
     Route: 048
  2. ACETAMINOPHEN [Suspect]
     Route: 048
  3. BROMPHENIRAMINE/ PSEUDOEPHEDRINE [Suspect]
     Route: 048
  4. ACETAMINOPHEN AND HYDROCODONE BITARTRATE [Suspect]
     Route: 048
  5. ACETAMINOPHEN AND HYDROCODONE BITARTRATE [Suspect]
     Route: 048
  6. HYOSCYAMINE [Suspect]
     Route: 048
  7. HYDROCHLOROTHIAZIDE [Suspect]
     Route: 048
  8. SALINE LAXATIVE [Suspect]
     Route: 048

REACTIONS (7)
  - CARDIAC ARREST [None]
  - COMPLETED SUICIDE [None]
  - ELECTROCARDIOGRAM QT PROLONGED [None]
  - INTENTIONAL MISUSE [None]
  - RESPIRATORY FAILURE [None]
  - SOMNOLENCE [None]
  - VENTRICULAR TACHYCARDIA [None]
